FAERS Safety Report 16797763 (Version 1)
Quarter: 2019Q3

REPORT INFORMATION
  Report Type: Spontaneous
  Country: US (occurrence: US)
  Receive Date: 20190912
  Receipt Date: 20190912
  Transmission Date: 20191005
  Serious: No
  Sender: FDA-Public Use
  Company Number: US-STRIDES ARCOLAB LIMITED-2019SP006926

PATIENT
  Age: 29 Year
  Sex: Female

DRUGS (23)
  1. NOREPINEPHRINE. [Suspect]
     Active Substance: NOREPINEPHRINE
     Indication: PRODUCT USED FOR UNKNOWN INDICATION
     Dosage: UNK
     Route: 042
  2. INSULIN [Suspect]
     Active Substance: INSULIN NOS
     Dosage: UNK, INFUSION
     Route: 042
  3. HEPARIN [Suspect]
     Active Substance: HEPARIN SODIUM
     Indication: DEEP VEIN THROMBOSIS
     Dosage: UNK
     Route: 065
  4. METOPROLOL. [Suspect]
     Active Substance: METOPROLOL
     Indication: PRODUCT USED FOR UNKNOWN INDICATION
     Dosage: UNK
     Route: 065
  5. SODIUM CITRATE/CITRIC ACID [Suspect]
     Active Substance: CITRIC ACID MONOHYDRATE\SODIUM CITRATE
     Indication: RESPIRATORY DISORDER PROPHYLAXIS
     Dosage: UNK
     Route: 065
  6. FUROSEMIDE. [Suspect]
     Active Substance: FUROSEMIDE
     Indication: PRODUCT USED FOR UNKNOWN INDICATION
     Dosage: UNK
     Route: 065
  7. INSULIN [Suspect]
     Active Substance: INSULIN NOS
     Indication: BLOOD GLUCOSE
     Dosage: UNK
     Route: 065
  8. MAGNESIUM [Suspect]
     Active Substance: MAGNESIUM
     Indication: BLOOD MAGNESIUM DECREASED
     Dosage: UNK
     Route: 042
  9. METOPROLOL. [Suspect]
     Active Substance: METOPROLOL
     Dosage: 12.5 MG, BID
     Route: 065
  10. FENTANYL. [Suspect]
     Active Substance: FENTANYL
     Indication: PRODUCT USED FOR UNKNOWN INDICATION
     Dosage: 250 ?G, UNKNOWN
     Route: 065
  11. DIGOXIN. [Suspect]
     Active Substance: DIGOXIN
     Indication: PRODUCT USED FOR UNKNOWN INDICATION
     Dosage: UNK
     Route: 065
  12. SPIRONOLACTONE. [Suspect]
     Active Substance: SPIRONOLACTONE
     Indication: PRODUCT USED FOR UNKNOWN INDICATION
     Dosage: UNK
     Route: 065
  13. SPIRONOLACTONE. [Suspect]
     Active Substance: SPIRONOLACTONE
     Dosage: 50MG DAILY
     Route: 065
  14. MILRINONE [Suspect]
     Active Substance: MILRINONE
     Indication: SURGERY
     Dosage: 0.25 ?G/KG/MIN
     Route: 065
  15. SEVOFLURANE. [Suspect]
     Active Substance: SEVOFLURANE
     Indication: GENERAL ANAESTHESIA
     Dosage: UNK
     Route: 065
  16. FAMOTIDINE. [Suspect]
     Active Substance: FAMOTIDINE
     Indication: RESPIRATORY DISORDER PROPHYLAXIS
     Dosage: UNK
     Route: 065
  17. EPINEPHRINE. [Suspect]
     Active Substance: EPINEPHRINE
     Indication: MYOCARDIAL DEPRESSION
     Dosage: 20 ?G, UNKNOWN
     Route: 065
  18. BETAMETHASONE. [Suspect]
     Active Substance: BETAMETHASONE
     Indication: MATERNAL THERAPY TO ENHANCE FOETAL LUNG MATURITY
     Dosage: UNK
     Route: 065
  19. EPINEPHRINE. [Suspect]
     Active Substance: EPINEPHRINE
     Indication: PROPHYLAXIS
     Dosage: 10-20?G
     Route: 065
  20. POTASSIUM CHLORIDE. [Suspect]
     Active Substance: POTASSIUM CHLORIDE
     Indication: BLOOD POTASSIUM DECREASED
     Dosage: UNK
     Route: 042
  21. SUCCINYLCHOLINE CHLORIDE. [Suspect]
     Active Substance: SUCCINYLCHOLINE CHLORIDE
     Indication: PRODUCT USED FOR UNKNOWN INDICATION
     Dosage: 90 MG, UNKNOWN
     Route: 065
  22. EPINEPHRINE. [Suspect]
     Active Substance: EPINEPHRINE
     Indication: VASODILATATION
  23. PROPOFOL. [Suspect]
     Active Substance: PROPOFOL
     Indication: PRODUCT USED FOR UNKNOWN INDICATION
     Dosage: 50 MG, UNKNOWN
     Route: 065

REACTIONS (1)
  - Exposure during pregnancy [Unknown]
